FAERS Safety Report 12017357 (Version 1)
Quarter: 2016Q1

REPORT INFORMATION
  Report Type: Report from Study
  Country: US (occurrence: US)
  Receive Date: 20160205
  Receipt Date: 20160205
  Transmission Date: 20160526
  Serious: No
  Sender: FDA-Public Use
  Company Number: US-ABBVIE-15K-163-1456473-00

PATIENT
  Age: 62 Year
  Sex: Female

DRUGS (1)
  1. HUMIRA [Suspect]
     Active Substance: ADALIMUMAB
     Indication: PSORIATIC ARTHROPATHY
     Route: 058
     Dates: start: 20150731, end: 20150814

REACTIONS (4)
  - Fatigue [Unknown]
  - Muscle spasms [Unknown]
  - Rash macular [Unknown]
  - Headache [Unknown]

NARRATIVE: CASE EVENT DATE: 201508
